FAERS Safety Report 12374295 (Version 6)
Quarter: 2016Q4

REPORT INFORMATION
  Report Type: Spontaneous
  Country: DZ (occurrence: DZ)
  Receive Date: 20160517
  Receipt Date: 20161222
  Transmission Date: 20170207
  Serious: Yes (Death, Life-Threatening, Hospitalization, Other)
  Sender: FDA-Public Use
  Company Number: DZ-009507513-1605DZA007135

PATIENT
  Age: 71 Year
  Sex: Male
  Weight: 79 kg

DRUGS (5)
  1. TRAMADOL HYDROCHLORIDE. [Concomitant]
     Active Substance: TRAMADOL HYDROCHLORIDE
     Indication: PAIN
     Dosage: 4 X/DAY
     Dates: start: 20160209, end: 20160505
  2. TEMGESIC [Concomitant]
     Active Substance: BUPRENORPHINE HYDROCHLORIDE
     Indication: PAIN
     Dosage: UNK
     Route: 058
     Dates: start: 20160209, end: 20160505
  3. MORPHINE SULFATE. [Concomitant]
     Active Substance: MORPHINE SULFATE
     Indication: PAIN
     Dosage: 2 X/DAY
     Route: 048
     Dates: start: 20160209, end: 20160505
  4. PEMBROLIZUMAB. [Suspect]
     Active Substance: PEMBROLIZUMAB
     Indication: LUNG ADENOCARCINOMA METASTATIC
     Dosage: TOTAL DAILY DOSE: 150 MG (2 MG/KG)
     Route: 042
     Dates: start: 20160504, end: 201605
  5. HEPARIN LOW MOLECULAR WEIGHT [Concomitant]
     Dosage: CURATIVE DOSE
     Dates: start: 201512

REACTIONS (5)
  - Multiple organ dysfunction syndrome [Fatal]
  - Subileus [Not Recovered/Not Resolved]
  - Malignant neoplasm progression [Unknown]
  - Prerenal failure [Not Recovered/Not Resolved]
  - Bacterial sepsis [Unknown]

NARRATIVE: CASE EVENT DATE: 201605
